FAERS Safety Report 9440989 (Version 1)
Quarter: 2013Q3

REPORT INFORMATION
  Report Type: Spontaneous
  Country: US (occurrence: None)
  Receive Date: 20130801
  Receipt Date: 20130801
  Transmission Date: 20140515
  Serious: Yes (Hospitalization)
  Sender: FDA-Public Use
  Company Number: ACO_37273_2013

PATIENT
  Sex: Female

DRUGS (1)
  1. AMPRYA [Suspect]
     Indication: PRODUCT USED FOR UNKNOWN INDICATION
     Dates: start: 20130513, end: 2013

REACTIONS (5)
  - Blood count abnormal [None]
  - Dizziness [None]
  - Asthenia [None]
  - Human anaplasmosis [None]
  - Arthropod bite [None]
